FAERS Safety Report 7137757-5 (Version None)
Quarter: 2010Q4

REPORT INFORMATION
  Report Type: 
  Country: None (occurrence: None)
  Receive Date: 20101206
  Receipt Date: 20101130
  Transmission Date: 20110411
  Serious: Yes (Death, Hospitalization, Disabling, Other)
  Sender: FDA-Public Use
  Company Number: PHHY2008CA16658

PATIENT
  Sex: Male

DRUGS (7)
  1. CLOZARIL [Suspect]
     Indication: SCHIZOPHRENIA
     Dosage: 200 MG/DAY
     Route: 048
     Dates: start: 20080707
  2. ZYPREXA [Concomitant]
     Dosage: 20 MG
     Dates: start: 20080401, end: 20080423
  3. RISPERDAL [Concomitant]
     Dosage: UNK
     Dates: start: 20080423, end: 20080505
  4. HALDOL [Concomitant]
     Dosage: 8 MG
     Dates: start: 20080505
  5. ZIPRASIDONE HCL [Concomitant]
     Dosage: 80 MG, BID
     Dates: start: 20080617, end: 20080710
  6. KEMADRIN [Concomitant]
     Dosage: 7.5 MG, BID
     Dates: start: 20080505, end: 20080902
  7. LUTEIN [Concomitant]
     Dosage: 2 MG, BID
     Dates: start: 20080902

REACTIONS (3)
  - IDIOPATHIC THROMBOCYTOPENIC PURPURA [None]
  - MYOCARDIAL INFARCTION [None]
  - PLATELET COUNT DECREASED [None]
